FAERS Safety Report 10308631 (Version 2)
Quarter: 2014Q3

REPORT INFORMATION
  Report Type: Spontaneous
  Country: CA (occurrence: CA)
  Receive Date: 20140716
  Receipt Date: 20140716
  Transmission Date: 20150326
  Serious: Yes (Other)
  Sender: FDA-Public Use
  Company Number: CA-AMGEN-CANSP2013055479

PATIENT
  Age: 72 Year
  Sex: Female
  Weight: 51.8 kg

DRUGS (2)
  1. PROLIA [Suspect]
     Active Substance: DENOSUMAB
     Indication: OSTEOPOROSIS POSTMENOPAUSAL
     Dosage: 60 MG, Q6MO
     Route: 058
     Dates: start: 20120114
  2. IMITREX [Concomitant]
     Active Substance: SUMATRIPTAN\SUMATRIPTAN SUCCINATE
     Indication: MIGRAINE
     Route: 048

REACTIONS (7)
  - Hypoaesthesia [Unknown]
  - Eye pain [Unknown]
  - Toothache [Unknown]
  - Localised infection [Unknown]
  - Pain in jaw [Unknown]
  - Osteonecrosis of jaw [Unknown]
  - Paraesthesia [Unknown]
